FAERS Safety Report 4280396-4 (Version None)
Quarter: 2004Q1

REPORT INFORMATION
  Report Type: 
  Country: None (occurrence: None)
  Receive Date: 20040126
  Receipt Date: 20040112
  Transmission Date: 20041129
  Serious: Yes (Death)
  Sender: FDA-Public Use
  Company Number: CERZ-10482

PATIENT
  Age: 82 Year
  Sex: Female
  Weight: 52.1637 kg

DRUGS (1)
  1. CEREZYME [Suspect]
     Indication: GAUCHER'S DISEASE
     Dosage: 1600 UNITS QWK IV
     Route: 042
     Dates: start: 19970401, end: 20031008

REACTIONS (1)
  - CARDIAC DISORDER [None]
